FAERS Safety Report 7639746-0 (Version None)
Quarter: 2011Q3

REPORT INFORMATION
  Report Type: 
  Country: None (occurrence: None)
  Receive Date: 20110727
  Receipt Date: 20110714
  Transmission Date: 20111222
  Serious: Yes (Other)
  Sender: FDA-Public Use
  Company Number: US-CELGENEUS-163-21880-11060334

PATIENT
  Sex: Female
  Weight: 76.2 kg

DRUGS (10)
  1. ASPIRIN [Concomitant]
     Route: 065
  2. ZYRTEC [Concomitant]
     Dosage: 10 MILLIGRAM
     Route: 065
  3. GUAIFENESIN/CODEINE [Concomitant]
     Indication: COUGH
     Dosage: 100-10MG/5ML
     Route: 048
  4. WARFARIN SODIUM [Concomitant]
     Route: 065
     Dates: start: 20110201
  5. REVLIMID [Suspect]
     Dosage: 2.5 MILLIGRAM
     Route: 048
     Dates: start: 20101021
  6. KAPIDEX [Concomitant]
     Dosage: 60 MILLIGRAM
     Route: 065
  7. DRISDOL [Concomitant]
     Dosage: 50,000 UNITS
     Route: 048
  8. REVLIMID [Suspect]
     Indication: MYELODYSPLASTIC SYNDROME
     Dosage: 5 MILLIGRAM
     Route: 048
     Dates: start: 20100801
  9. FLUTICASONE PROPIONATE [Concomitant]
     Dosage: 220 MICROGRAM
     Route: 055
  10. VITAMIN D [Concomitant]
     Dosage: 1000 UNITS
     Route: 065

REACTIONS (3)
  - ABDOMINAL DISCOMFORT [None]
  - DIARRHOEA [None]
  - PLEURITIC PAIN [None]
